FAERS Safety Report 12865464 (Version 1)
Quarter: 2016Q4

REPORT INFORMATION
  Report Type: Report from Study
  Country: US (occurrence: US)
  Receive Date: 20161020
  Receipt Date: 20161020
  Transmission Date: 20170207
  Serious: Yes (Hospitalization, Other)
  Sender: FDA-Public Use
  Company Number: US-JNJFOC-20160817257

PATIENT
  Age: 66 Year
  Sex: Male

DRUGS (4)
  1. ASMANEX [Concomitant]
     Active Substance: MOMETASONE FUROATE
     Route: 048
  2. CITALOPRAM [Concomitant]
     Active Substance: CITALOPRAM HYDROBROMIDE
  3. TOPAMAX [Concomitant]
     Active Substance: TOPIRAMATE
  4. IMBRUVICA [Suspect]
     Active Substance: IBRUTINIB
     Indication: CHRONIC LYMPHOCYTIC LEUKAEMIA
     Route: 048
     Dates: start: 20160524

REACTIONS (9)
  - Diarrhoea [Unknown]
  - Hyperhidrosis [Unknown]
  - Headache [Unknown]
  - Cough [Unknown]
  - Tibia fracture [Unknown]
  - Fibula fracture [Unknown]
  - Loss of consciousness [Unknown]
  - Wheezing [Unknown]
  - Adverse event [Unknown]

NARRATIVE: CASE EVENT DATE: 20160903
